FAERS Safety Report 19242316 (Version 1)
Quarter: 2021Q2

REPORT INFORMATION
  Report Type: Spontaneous
  Country: US (occurrence: US)
  Receive Date: 20210510
  Receipt Date: 20210510
  Transmission Date: 20210717
  Serious: No
  Sender: FDA-Public Use
  Company Number: US-009507513-2105USA001578

PATIENT
  Sex: Female

DRUGS (2)
  1. LENVATINIB MESYLATE [Suspect]
     Active Substance: LENVATINIB MESYLATE
     Indication: OVARIAN CANCER
     Dosage: TOTAL DAILY DOSE 14 MG
     Route: 048
     Dates: start: 20210222
  2. KEYTRUDA [Suspect]
     Active Substance: PEMBROLIZUMAB
     Indication: ENDOMETRIAL CANCER
     Dosage: UNK
     Route: 042

REACTIONS (6)
  - Hyperkeratosis [Recovering/Resolving]
  - Blood pressure increased [Recovering/Resolving]
  - Thyroid function test abnormal [Unknown]
  - Skin exfoliation [Recovering/Resolving]
  - Adrenal disorder [Unknown]
  - Pain [Recovering/Resolving]

NARRATIVE: CASE EVENT DATE: 202103
